FAERS Safety Report 18441591 (Version 1)
Quarter: 2020Q4

REPORT INFORMATION
  Report Type: Spontaneous
  Country: PT (occurrence: PT)
  Receive Date: 20201029
  Receipt Date: 20201029
  Transmission Date: 20210114
  Serious: Yes (Other)
  Sender: FDA-Public Use
  Company Number: PHHY2019PT007769

PATIENT
  Age: 75 Year
  Sex: Female

DRUGS (3)
  1. ETOPOSIDE. [Suspect]
     Active Substance: ETOPOSIDE
     Indication: NEUROENDOCRINE TUMOUR
     Dosage: 80 MG/M2, (DAYS 1 AND 2) EVERY 21 DAYS, ORAL ETOPOSIDE 150 MG/M2 (DAYS 1-3), EVERY 21 DAYS.
     Route: 065
  2. ETOPOSIDE. [Suspect]
     Active Substance: ETOPOSIDE
     Dosage: 150 MG/M2, (DAYS 1-3), EVERY 21 DAYS
     Route: 048
  3. CARBOPLATIN. [Suspect]
     Active Substance: CARBOPLATIN
     Indication: NEUROENDOCRINE TUMOUR
     Dosage: UNK, AUC4 (DAY 1)
     Route: 065

REACTIONS (7)
  - Off label use [Unknown]
  - Cough [Not Recovered/Not Resolved]
  - Dysphonia [Unknown]
  - Drug ineffective [Unknown]
  - Alopecia totalis [Unknown]
  - Dyspnoea exertional [Unknown]
  - Asthenia [Unknown]
